FAERS Safety Report 6644413-6 (Version None)
Quarter: 2010Q1

REPORT INFORMATION
  Report Type: 
  Country: None (occurrence: None)
  Receive Date: 20100322
  Receipt Date: 20100311
  Transmission Date: 20100710
  Serious: Yes (Hospitalization)
  Sender: FDA-Public Use
  Company Number: JP-ROCHE-691244

PATIENT
  Sex: Female
  Weight: 49 kg

DRUGS (18)
  1. TOCILIZUMAB [Suspect]
     Indication: RHEUMATOID ARTHRITIS
     Dosage: DOSAGE FORM REPORTED AS INJECTION.
     Route: 041
     Dates: start: 20090805, end: 20090805
  2. TOCILIZUMAB [Suspect]
     Dosage: DOSAGE FORM REPORTED AS INJECTION.
     Route: 041
     Dates: start: 20090831, end: 20090831
  3. TOCILIZUMAB [Suspect]
     Dosage: DOSAGE FORM REPORTED AS INJECTION.
     Route: 041
     Dates: start: 20091002, end: 20091002
  4. TOCILIZUMAB [Suspect]
     Dosage: DOSAGE FORM REPORTED AS INJECTION.
     Route: 041
     Dates: start: 20091113, end: 20091113
  5. TOCILIZUMAB [Suspect]
     Dosage: DOSAGE FORM REPORTED AS INJECTION.
     Route: 041
     Dates: start: 20091218, end: 20091218
  6. TOCILIZUMAB [Suspect]
     Dosage: DOSAGE FORM REPORTED AS INJECTION.
     Route: 041
     Dates: start: 20100115, end: 20100115
  7. TOCILIZUMAB [Suspect]
     Dosage: DOSAGE FORM REPORTED AS INJECTION.
     Route: 041
     Dates: start: 20100301
  8. BREDININ [Concomitant]
     Route: 048
  9. PREDNISOLONE [Concomitant]
     Dosage: DOSE FORM REPORTED AS PERORAL AGENT
     Route: 048
  10. PREDNISOLONE [Concomitant]
     Dosage: DOSE FORM REPORTED AS PERORAL AGENT
     Route: 048
     Dates: start: 20090901, end: 20091002
  11. PREDNISOLONE [Concomitant]
     Dosage: DOSE FORM REPORTED AS PERORAL AGENT
     Route: 048
     Dates: start: 20091003, end: 20091112
  12. PREDNISOLONE [Concomitant]
     Dosage: DOSE FORM REPORTED AS PERORAL AGENT
     Route: 048
     Dates: start: 20091113, end: 20091217
  13. PREDNISOLONE [Concomitant]
     Dosage: DOSE FORM REPORTED AS PERORAL AGENT
     Route: 048
     Dates: start: 20091218, end: 20100114
  14. PREDNISOLONE [Concomitant]
     Dosage: DOSE FORM REPORTED AS PERORAL AGENT
     Route: 048
     Dates: start: 20100115, end: 20100228
  15. PREDNISOLONE [Concomitant]
     Dosage: DOSE FORM REPORTED AS PERORAL AGENT
     Route: 048
     Dates: start: 20100301
  16. FAMOTIDINE [Concomitant]
     Dosage: DOSAGE FORM REPORTED AS PERORAL AGENT
     Route: 048
  17. IMIDAFENACIN [Concomitant]
     Dosage: DRUG REPORTED AS STAYBLA.
     Route: 048
  18. ALENDRONATE SODIUM [Concomitant]
     Route: 048

REACTIONS (3)
  - INTESTINAL OBSTRUCTION [None]
  - MECHANICAL ILEUS [None]
  - VOLVULUS OF SMALL BOWEL [None]
